FAERS Safety Report 4431455-4 (Version None)
Quarter: 2004Q3

REPORT INFORMATION
  Report Type: 
  Country: None (occurrence: None)
  Receive Date: 20040824
  Receipt Date: 20040601
  Transmission Date: 20050211
  Serious: Yes (Hospitalization, Disabling)
  Sender: FDA-Public Use
  Company Number: PHNU2004DE01992

PATIENT
  Age: 2 Year
  Sex: Male
  Weight: 14 kg

DRUGS (7)
  1. SANDIMMUNE [Suspect]
     Indication: RENAL TRANSPLANT
     Dosage: 130 MG DAILY
     Route: 048
     Dates: start: 20031019, end: 20040605
  2. CELLCEPT [Concomitant]
     Indication: RENAL TRANSPLANT
     Dosage: 150 MG, BID
     Route: 048
     Dates: start: 20031001
  3. CELLCEPT [Concomitant]
     Dosage: 250 MG, BID
     Route: 048
     Dates: start: 20040715
  4. DECORTIN [Suspect]
     Indication: RENAL TRANSPLANT
     Dosage: 2 MG DAILY
     Route: 048
     Dates: start: 20040715
  5. DECORTIN [Suspect]
     Dosage: 5 MG, BID
     Route: 048
     Dates: start: 20031001
  6. MAGNESIUM VERLA CONCENTRATED [Concomitant]
     Indication: RENAL TRANSPLANT
     Dosage: .5 DF, BID
     Route: 048
     Dates: start: 20031001
  7. PROGRAF [Concomitant]
     Dates: start: 20040601

REACTIONS (13)
  - BENIGN INTRACRANIAL HYPERTENSION [None]
  - C-REACTIVE PROTEIN INCREASED [None]
  - CEREBRAL CYST [None]
  - COLON OPERATION [None]
  - CSF PRESSURE INCREASED [None]
  - CYST [None]
  - NYSTAGMUS [None]
  - OPTIC ATROPHY [None]
  - OPTIC NEURITIS RETROBULBAR [None]
  - PUPILLARY REFLEX IMPAIRED [None]
  - STRABISMUS [None]
  - SURGERY [None]
  - VISUAL ACUITY REDUCED [None]
